FAERS Safety Report 15892245 (Version 1)
Quarter: 2019Q1

REPORT INFORMATION
  Report Type: Report from Study
  Country: US (occurrence: US)
  Receive Date: 20190130
  Receipt Date: 20190130
  Transmission Date: 20190417
  Serious: No
  Sender: FDA-Public Use
  Company Number: US-EXELIXIS-CABO-18014411

PATIENT
  Sex: Male

DRUGS (10)
  1. FENOFIBRATE. [Concomitant]
     Active Substance: FENOFIBRATE
  2. METFORMIN [Concomitant]
     Active Substance: METFORMIN HYDROCHLORIDE
  3. JANUVIA [Concomitant]
     Active Substance: SITAGLIPTIN PHOSPHATE
  4. SYNTHROID [Concomitant]
     Active Substance: LEVOTHYROXINE SODIUM
  5. CALCIUM + VITAMIN D [Concomitant]
     Active Substance: CALCIUM\VITAMIN D
  6. COMETRIQ [Suspect]
     Active Substance: CABOZANTINIB S-MALATE
     Indication: MEDULLARY THYROID CANCER
     Dosage: 60 MG, UNK
     Dates: start: 2017
  7. INVOKANA [Concomitant]
     Active Substance: CANAGLIFLOZIN
  8. COMETRIQ [Suspect]
     Active Substance: CABOZANTINIB S-MALATE
     Dosage: 40 MG, QD
     Dates: start: 201711
  9. TOUJEO [Concomitant]
     Active Substance: INSULIN GLARGINE
  10. NOVOLOG [Concomitant]
     Active Substance: INSULIN ASPART

REACTIONS (2)
  - Blood calcium decreased [Unknown]
  - Fatigue [Recovered/Resolved]
